FAERS Safety Report 5743565-X (Version None)
Quarter: 2008Q2

REPORT INFORMATION
  Report Type: 
  Country: None (occurrence: None)
  Receive Date: 20080519
  Receipt Date: 20080519
  Transmission Date: 20081010
  Serious: No
  Sender: FDA-Public Use
  Company Number: None

PATIENT
  Age: 59 Year
  Sex: Female
  Weight: 70.3075 kg

DRUGS (1)
  1. LEVAQUIN [Suspect]
     Indication: URINARY TRACT INFECTION
     Dosage: 1 TABLET 1X A DAY FOR 5 DA PO
     Route: 048
     Dates: start: 20080508, end: 20080512

REACTIONS (8)
  - ANXIETY [None]
  - FEAR [None]
  - GASTRIC DISORDER [None]
  - INSOMNIA [None]
  - NAUSEA [None]
  - NIGHTMARE [None]
  - NO REACTION ON PREVIOUS EXPOSURE TO DRUG [None]
  - VOMITING [None]
